FAERS Safety Report 7551776-6 (Version None)
Quarter: 2011Q2

REPORT INFORMATION
  Report Type: 
  Country: None (occurrence: None)
  Receive Date: 20110616
  Receipt Date: 20110519
  Transmission Date: 20111010
  Serious: Yes (Hospitalization)
  Sender: FDA-Public Use
  Company Number: B0720997A

PATIENT
  Sex: Male

DRUGS (2)
  1. CLONAZEPAM [Concomitant]
     Indication: PARTIAL SEIZURES
     Dosage: 1MG PER DAY
     Route: 048
     Dates: start: 20070523
  2. LAMICTAL [Suspect]
     Indication: PARTIAL SEIZURES
     Route: 048
     Dates: start: 20110219, end: 20110422

REACTIONS (5)
  - LIP SWELLING [None]
  - RASH [None]
  - PYREXIA [None]
  - CONJUNCTIVAL HYPERAEMIA [None]
  - ERYTHEMA [None]
